FAERS Safety Report 5286484-8 (Version None)
Quarter: 2007Q1

REPORT INFORMATION
  Report Type: 
  Country: None (occurrence: None)
  Receive Date: 20070104
  Receipt Date: 20060823
  Transmission Date: 20070707
  Serious: No
  Sender: FDA-Public Use
  Company Number: BDI-008572

PATIENT
  Age: 41 Year
  Sex: Female

DRUGS (2)
  1. MULTIHANCE [Suspect]
     Indication: MULTIPLE SCLEROSIS
     Dosage: 10 ML ONCE IV
     Route: 042
     Dates: start: 20060821, end: 20060821
  2. MULTIHANCE [Suspect]
     Indication: NUCLEAR MAGNETIC RESONANCE IMAGING BRAIN
     Dosage: 10 ML ONCE IV
     Route: 042
     Dates: start: 20060821, end: 20060821

REACTIONS (2)
  - NAUSEA [None]
  - VOMITING [None]
